FAERS Safety Report 6346664-7 (Version None)
Quarter: 2009Q3

REPORT INFORMATION
  Report Type: 
  Country: None (occurrence: None)
  Receive Date: 20090904
  Receipt Date: 20090821
  Transmission Date: 20100115
  Serious: Yes (Hospitalization)
  Sender: FDA-Public Use
  Company Number: 001608

PATIENT
  Age: 33 Year
  Sex: Male

DRUGS (4)
  1. LACOSAMIDE [Suspect]
     Indication: EPILEPSY
     Dosage: ORAL
     Route: 048
     Dates: start: 20090602
  2. BACLOFEN [Concomitant]
  3. FLUDROCORTISONE [Concomitant]
  4. HYDROCORTISONE [Concomitant]

REACTIONS (4)
  - DIARRHOEA [None]
  - NEUTROPENIA [None]
  - VIRAL INFECTION [None]
  - VOMITING [None]
